FAERS Safety Report 16298827 (Version 2)
Quarter: 2019Q2

REPORT INFORMATION
  Report Type: Report from Study
  Country: GT (occurrence: GT)
  Receive Date: 20190510
  Receipt Date: 20190529
  Transmission Date: 20190711
  Serious: Yes (Other)
  Sender: FDA-Public Use
  Company Number: PHHY2019GT104018

PATIENT
  Age: 27 Year
  Sex: Female
  Weight: 87.98 kg

DRUGS (2)
  1. BELLAFACE [Concomitant]
     Indication: CONTRACEPTION
     Dosage: UNK UNK, QD (FOR 21 DATS)
     Route: 065
     Dates: start: 201811
  2. GILENYA [Suspect]
     Active Substance: FINGOLIMOD HYDROCHLORIDE
     Indication: MULTIPLE SCLEROSIS
     Dosage: UNK UNK, QD
     Route: 065
     Dates: start: 20160816

REACTIONS (11)
  - Weight decreased [Unknown]
  - Blood cholesterol increased [Unknown]
  - Hyperinsulinaemia [Recovering/Resolving]
  - Progesterone decreased [Unknown]
  - Blood triglycerides increased [Unknown]
  - Blood testosterone increased [Unknown]
  - Sex hormone binding globulin increased [Unknown]
  - Blood prolactin increased [Unknown]
  - Blood follicle stimulating hormone decreased [Unknown]
  - Dehydroepiandrosterone increased [Unknown]
  - Weight increased [Unknown]

NARRATIVE: CASE EVENT DATE: 20180901
